FAERS Safety Report 9671583 (Version 1)
Quarter: 2013Q4

REPORT INFORMATION
  Report Type: Spontaneous
  Country: DE (occurrence: None)
  Receive Date: 20131104
  Receipt Date: 20131104
  Transmission Date: 20140711
  Serious: Yes (Other)
  Sender: FDA-Public Use
  Company Number: 1310-1344

PATIENT
  Age: 40 Year
  Sex: Female

DRUGS (1)
  1. EYELEA [Suspect]
     Indication: AGE-RELATED MACULAR DEGENERATION
     Dosage: 1 IN 8 WEEKS
     Route: 031
     Dates: start: 20130701

REACTIONS (2)
  - Superficial injury of eye [None]
  - Blindness [None]
